FAERS Safety Report 10861793 (Version 2)
Quarter: 2015Q1

REPORT INFORMATION
  Report Type: Spontaneous
  Country: JP (occurrence: JP)
  Receive Date: 20150224
  Receipt Date: 20150323
  Transmission Date: 20150721
  Serious: No
  Sender: FDA-Public Use
  Company Number: JP-PFIZER INC-2015067016

PATIENT
  Age: 4 Year
  Sex: Female
  Weight: 23 kg

DRUGS (2)
  1. GENOTROPIN TC [Suspect]
     Active Substance: SOMATROPIN
     Indication: PRADER-WILLI SYNDROME
     Dosage: 0.4 MG, CYCLIC (6X/WEEK)
     Route: 058
  2. GENOTROPIN TC [Suspect]
     Active Substance: SOMATROPIN
     Dosage: 0.4 MG, 1X/DAY (7X/WEEK)
     Route: 058

REACTIONS (4)
  - Hypothyroidism [Recovering/Resolving]
  - Obesity [Not Recovered/Not Resolved]
  - Sleep apnoea syndrome [Recovering/Resolving]
  - Scoliosis [Unknown]
